FAERS Safety Report 9103887 (Version 1)
Quarter: 2013Q1

REPORT INFORMATION
  Report Type: Spontaneous
  Country: US (occurrence: US)
  Receive Date: 20130219
  Receipt Date: 20130219
  Transmission Date: 20140127
  Serious: No
  Sender: FDA-Public Use
  Company Number: US-PFIZER INC-2013061692

PATIENT
  Age: 45 Year
  Sex: Female
  Weight: 68.03 kg

DRUGS (1)
  1. LYRICA [Suspect]
     Indication: FIBROMYALGIA
     Dosage: 400 MG, 1X/DAY
     Dates: end: 201302

REACTIONS (3)
  - Pyrexia [Unknown]
  - Malaise [Unknown]
  - Feeling abnormal [Unknown]
